FAERS Safety Report 4777081-9 (Version None)
Quarter: 2005Q3

REPORT INFORMATION
  Report Type: 
  Country: None (occurrence: None)
  Receive Date: 20050923
  Receipt Date: 20050912
  Transmission Date: 20060218
  Serious: Yes (Other)
  Sender: FDA-Public Use
  Company Number: DE-JNJFOC-20050703601

PATIENT
  Sex: Male

DRUGS (2)
  1. RISPERDAL [Suspect]
     Dosage: DOSE REDUCED.
     Route: 048
  2. RISPERDAL [Suspect]
     Indication: SCHIZOPHRENIA
     Route: 048

REACTIONS (4)
  - HYPERTENSION [None]
  - LABORATORY TEST INTERFERENCE [None]
  - PHAEOCHROMOCYTOMA [None]
  - TACHYCARDIA [None]
